FAERS Safety Report 11220789 (Version 3)
Quarter: 2015Q3

REPORT INFORMATION
  Report Type: Report from Study
  Country: BR (occurrence: BR)
  Receive Date: 20150626
  Receipt Date: 20150825
  Transmission Date: 20151125
  Serious: Yes (Other)
  Sender: FDA-Public Use
  Company Number: BR-ROCHE-1596902

PATIENT
  Age: 48 Year
  Sex: Female
  Weight: 83 kg

DRUGS (6)
  1. ATENOLOL. [Concomitant]
     Active Substance: ATENOLOL
     Indication: ARRHYTHMIA
  2. CEDRILAX [Concomitant]
  3. ACTEMRA [Suspect]
     Active Substance: TOCILIZUMAB
     Indication: RHEUMATOID ARTHRITIS
     Route: 042
     Dates: start: 20150519
  4. ACTEMRA [Suspect]
     Active Substance: TOCILIZUMAB
     Route: 042
     Dates: start: 20150523
  5. OMEPRAZOLE. [Concomitant]
     Active Substance: OMEPRAZOLE
     Indication: GASTRITIS
     Route: 065
     Dates: start: 2013
  6. ALPRAZOLAM. [Concomitant]
     Active Substance: ALPRAZOLAM
     Indication: DEPRESSION
     Route: 065
     Dates: start: 2012

REACTIONS (12)
  - Nasopharyngitis [Recovering/Resolving]
  - Arrhythmia [Not Recovered/Not Resolved]
  - Blood triglycerides increased [Unknown]
  - Blood cholesterol increased [Unknown]
  - Rheumatic fever [Recovering/Resolving]
  - Insomnia [Not Recovered/Not Resolved]
  - Discomfort [Not Recovered/Not Resolved]
  - Weight increased [Unknown]
  - Blood pressure decreased [Unknown]
  - Heart rate decreased [Not Recovered/Not Resolved]
  - Low density lipoprotein increased [Unknown]
  - Drug ineffective [Unknown]

NARRATIVE: CASE EVENT DATE: 20150523
